FAERS Safety Report 18521768 (Version 3)
Quarter: 2020Q4

REPORT INFORMATION
  Report Type: Spontaneous
  Country: BE (occurrence: BE)
  Receive Date: 20201119
  Receipt Date: 20201124
  Transmission Date: 20210114
  Serious: Yes (Other)
  Sender: FDA-Public Use
  Company Number: BE-009507513-2010BEL004654

PATIENT
  Age: 33 Year
  Sex: Female
  Weight: 56 kg

DRUGS (2)
  1. PUREGON (FOLLITROPIN BETA) [Suspect]
     Active Substance: FOLLITROPIN
     Indication: IN VITRO FERTILISATION
     Dosage: STRENGTH: 600UI/0.72ML, DOSE 150 (UNITS UNSPECIFIED), QD
     Route: 042
     Dates: start: 20200918, end: 202009
  2. PUREGON (FOLLITROPIN BETA) [Suspect]
     Active Substance: FOLLITROPIN
     Dosage: STRENGTH: 600UI/0.72ML, DOSE 150 (UNITS UNSPECIFIED), QD
     Route: 042
     Dates: start: 20200922, end: 20200930

REACTIONS (4)
  - Incorrect route of product administration [Unknown]
  - Device malfunction [Unknown]
  - Maternal exposure before pregnancy [Unknown]
  - Incorrect dose administered by device [Unknown]

NARRATIVE: CASE EVENT DATE: 2020
